FAERS Safety Report 12968594 (Version 3)
Quarter: 2017Q4

REPORT INFORMATION
  Report Type: Spontaneous
  Country: PT (occurrence: PT)
  Receive Date: 20161123
  Receipt Date: 20171227
  Transmission Date: 20180320
  Serious: Yes (Life-Threatening, Other)
  Sender: FDA-Public Use
  Company Number: PT-BAYER-2016-221749

PATIENT
  Age: 78 Year
  Sex: Female

DRUGS (8)
  1. SILDENAFIL. [Suspect]
     Active Substance: SILDENAFIL
     Indication: PERIPHERAL ISCHAEMIA
  2. BOSENTAN. [Concomitant]
     Active Substance: BOSENTAN
  3. NIFEDIPINE. [Suspect]
     Active Substance: NIFEDIPINE
  4. ACETYLSALICYLIC ACID({=100 MG) [Suspect]
     Active Substance: ASPIRIN
  5. NIFEDIPINE. [Concomitant]
     Active Substance: NIFEDIPINE
  6. ENOXAPARIN [Suspect]
     Active Substance: ENOXAPARIN
     Indication: PERIPHERAL ISCHAEMIA
  7. SIMVASTATIN. [Suspect]
     Active Substance: SIMVASTATIN
  8. PENTOXIFYLLINE. [Suspect]
     Active Substance: PENTOXIFYLLINE
     Indication: PERIPHERAL ISCHAEMIA

REACTIONS (3)
  - Treatment noncompliance [None]
  - Drug ineffective [None]
  - Peripheral ischaemia [None]
